FAERS Safety Report 7392472-8 (Version None)
Quarter: 2011Q2

REPORT INFORMATION
  Report Type: 
  Country: None (occurrence: None)
  Receive Date: 20110404
  Receipt Date: 20110307
  Transmission Date: 20111010
  Serious: No
  Sender: FDA-Public Use
  Company Number: US-BAYER-2011-022549

PATIENT
  Sex: Female
  Weight: 54 kg

DRUGS (2)
  1. CONTRACEPTIVES NOS [Concomitant]
  2. ALEVE (CAPLET) [Suspect]
     Indication: ANALGESIC THERAPY
     Dosage: 2 DF, BID
     Dates: start: 20110307, end: 20110307

REACTIONS (1)
  - NO ADVERSE EVENT [None]
